FAERS Safety Report 25522545 (Version 1)
Quarter: 2025Q3

REPORT INFORMATION
  Report Type: Spontaneous
  Country: US (occurrence: US)
  Receive Date: 20250707
  Receipt Date: 20250707
  Transmission Date: 20251020
  Serious: No
  Sender: BIOCON
  Company Number: US-MIMS-BCONMC-14758

PATIENT

DRUGS (1)
  1. YESINTEK [Suspect]
     Active Substance: USTEKINUMAB-KFCE
     Indication: Crohn^s disease
     Dosage: 90 MG/ML, QMONTH
     Route: 058
     Dates: start: 20250419

REACTIONS (5)
  - Symptom recurrence [Unknown]
  - Malaise [Unknown]
  - Device leakage [Unknown]
  - Product dose omission issue [Unknown]
  - Product use issue [Unknown]
